FAERS Safety Report 11422982 (Version 1)
Quarter: 2015Q3

REPORT INFORMATION
  Report Type: Spontaneous
  Country: US (occurrence: None)
  Receive Date: 20150826
  Receipt Date: 20150826
  Transmission Date: 20151125
  Serious: Yes (Life-Threatening, Hospitalization)
  Sender: FDA-Public Use
  Company Number: None

PATIENT
  Age: 61 Year
  Sex: Female
  Weight: 48 kg

DRUGS (8)
  1. DEXAMETHASONE. [Concomitant]
     Active Substance: DEXAMETHASONE
  2. CETUXIMAB [Suspect]
     Active Substance: CETUXIMAB
     Indication: COLON CANCER
     Route: 042
     Dates: start: 20150824, end: 20150824
  3. HYDROMORPHONE [Concomitant]
     Active Substance: HYDROMORPHONE
  4. ERBITUX DLPHENHYDRAMINE [Concomitant]
  5. ERBITUX OCTREOTIDE [Concomitant]
  6. TINCTURE OF OPIUM [Concomitant]
     Active Substance: OPIUM
  7. FENTANYL. [Concomitant]
     Active Substance: FENTANYL
  8. ONDANSETRON [Concomitant]
     Active Substance: ONDANSETRON

REACTIONS (5)
  - Chills [None]
  - Feeling cold [None]
  - Body temperature increased [None]
  - Nausea [None]
  - Somnolence [None]

NARRATIVE: CASE EVENT DATE: 20150824
